FAERS Safety Report 19180169 (Version 1)
Quarter: 2021Q2

REPORT INFORMATION
  Report Type: Spontaneous
  Country: CD (occurrence: CD)
  Receive Date: 20210426
  Receipt Date: 20210426
  Transmission Date: 20210717
  Serious: Yes (Death, Other)
  Sender: FDA-Public Use
  Company Number: CD-LUPIN PHARMACEUTICALS INC.-2021-05718

PATIENT
  Sex: Female

DRUGS (6)
  1. CEFTRIAXONE. [Suspect]
     Active Substance: CEFTRIAXONE
     Indication: COVID-19
     Dosage: UNK
     Route: 064
  2. NIFEDIPINE. [Suspect]
     Active Substance: NIFEDIPINE
     Indication: TOCOLYSIS
     Dosage: UNK
     Route: 064
  3. TRIMETHYLPHLOROGLUCINOL [Suspect]
     Active Substance: 1,3,5-TRIMETHOXYBENZENE
     Indication: MUSCLE SPASMS
     Dosage: UNK
     Route: 064
  4. ACETAMINOPHEN. [Suspect]
     Active Substance: ACETAMINOPHEN
     Indication: ANTIPYRESIS
     Dosage: UNK
     Route: 064
  5. DEXAMETHASONE. [Suspect]
     Active Substance: DEXAMETHASONE
     Indication: MATERNAL THERAPY TO ENHANCE FOETAL LUNG MATURITY
     Dosage: 12 MILLIGRAM, QD
     Route: 064
  6. AZITHROMYCIN ANHYDROUS. [Suspect]
     Active Substance: AZITHROMYCIN ANHYDROUS
     Indication: COVID-19
     Dosage: UNK
     Route: 064

REACTIONS (10)
  - Enterobacter infection [None]
  - Low birth weight baby [Unknown]
  - Jaundice neonatal [Unknown]
  - Respiratory distress [Unknown]
  - COVID-19 [Unknown]
  - Citrobacter infection [Unknown]
  - Sepsis neonatal [Fatal]
  - Foetal exposure during pregnancy [Unknown]
  - Premature baby [Unknown]
  - Colitis ulcerative [Unknown]
